FAERS Safety Report 5527847-2 (Version None)
Quarter: 2007Q4

REPORT INFORMATION
  Report Type: 
  Country: None (occurrence: None)
  Receive Date: 20071126
  Receipt Date: 20071126
  Transmission Date: 20080405
  Serious: No
  Sender: FDA-Public Use
  Company Number: None

PATIENT
  Age: 71 Year
  Sex: Female
  Weight: 77.1115 kg

DRUGS (2)
  1. CHANTIX [Suspect]
     Indication: SMOKING CESSATION THERAPY
     Dosage: PO
     Route: 048
     Dates: start: 20061025, end: 20061101
  2. CHANTIX [Suspect]
     Indication: SMOKING CESSATION THERAPY
     Dosage: 1 TAB BID - TWICE DAILY- PO
     Route: 048
     Dates: start: 20061101, end: 20070110

REACTIONS (5)
  - ABNORMAL BEHAVIOUR [None]
  - DEPENDENCE [None]
  - DEPRESSION [None]
  - FEELING ABNORMAL [None]
  - MENTAL DISORDER [None]
